FAERS Safety Report 7708888-3 (Version None)
Quarter: 2011Q3

REPORT INFORMATION
  Report Type: 
  Country: None (occurrence: None)
  Receive Date: 20110825
  Receipt Date: 20110811
  Transmission Date: 20111222
  Serious: Yes (Other)
  Sender: FDA-Public Use
  Company Number: US-UCBSA-039112

PATIENT
  Age: 14 Year
  Sex: Male

DRUGS (1)
  1. VIMPAT [Suspect]

REACTIONS (3)
  - CONVULSION [None]
  - TREMOR [None]
  - DRUG EFFECT DECREASED [None]
